FAERS Safety Report 15515473 (Version 1)
Quarter: 2018Q4

REPORT INFORMATION
  Report Type: Spontaneous
  Country: US (occurrence: US)
  Receive Date: 20181017
  Receipt Date: 20181017
  Transmission Date: 20190205
  Serious: Yes (Life-Threatening, Hospitalization, Other)
  Sender: FDA-Public Use
  Company Number: US-AMGEN-USASP2018143644

PATIENT
  Age: 44 Year
  Sex: Female
  Weight: 82 kg

DRUGS (6)
  1. ICLUSIG [Suspect]
     Active Substance: PONATINIB
     Indication: ACUTE LYMPHOCYTIC LEUKAEMIA
     Dosage: 45 MG, QOD
     Route: 048
     Dates: start: 20180828, end: 20180907
  2. ACICLOVIR [Concomitant]
     Active Substance: ACYCLOVIR
  3. BLINCYTO [Suspect]
     Active Substance: BLINATUMOMAB
     Dosage: 28 MUG/KG, UNK
     Route: 042
     Dates: end: 20180907
  4. BLINCYTO [Suspect]
     Active Substance: BLINATUMOMAB
     Indication: ACUTE LYMPHOCYTIC LEUKAEMIA
     Dosage: 9 MUG/KG (FOR 7 DAYS), UNK
     Route: 042
     Dates: start: 20180822
  5. FLUCONAZOLE. [Concomitant]
     Active Substance: FLUCONAZOLE
  6. AUGMENTIN [Concomitant]
     Active Substance: AMOXICILLIN\CLAVULANATE POTASSIUM

REACTIONS (2)
  - Cardiac arrest [Unknown]
  - Pyrexia [Recovered/Resolved]

NARRATIVE: CASE EVENT DATE: 2018
